FAERS Safety Report 8001956-0 (Version None)
Quarter: 2011Q4

REPORT INFORMATION
  Report Type: 
  Country: None (occurrence: None)
  Receive Date: 20111219
  Receipt Date: 20111205
  Transmission Date: 20120403
  Serious: Yes (Life-Threatening, Hospitalization, Other)
  Sender: FDA-Public Use
  Company Number: 2011MA017303

PATIENT
  Age: 34 Year
  Sex: Female
  Weight: 65 kg

DRUGS (2)
  1. VENLAFAXINE HYDROCHLORIDE [Suspect]
     Indication: PRODUCT USED FOR UNKNOWN INDICATION
     Dosage: 11.25 GR;1X;
  2. ACETAMINOPHEN [Suspect]
     Indication: PRODUCT USED FOR UNKNOWN INDICATION
     Dosage: 20 G;1X;

REACTIONS (11)
  - CONVULSION [None]
  - CONTINUOUS HAEMODIAFILTRATION [None]
  - SEROTONIN SYNDROME [None]
  - ELECTROCARDIOGRAM ST SEGMENT DEPRESSION [None]
  - RENAL FAILURE ACUTE [None]
  - SUBENDOCARDIAL ISCHAEMIA [None]
  - COMA [None]
  - HYPOTENSION [None]
  - CARDIAC FAILURE ACUTE [None]
  - OVERDOSE [None]
  - CARDIOTOXICITY [None]
